FAERS Safety Report 11279858 (Version 1)
Quarter: 2015Q3

REPORT INFORMATION
  Report Type: Spontaneous
  Country: US (occurrence: None)
  Receive Date: 20150716
  Receipt Date: 20150716
  Transmission Date: 20151125
  Serious: Yes (Hospitalization)
  Sender: FDA-Public Use
  Company Number: None

PATIENT
  Age: 72 Year
  Sex: Male
  Weight: 77.7 kg

DRUGS (16)
  1. DBIGATRAN ATEXILATE [Concomitant]
  2. BENADRYL [Concomitant]
     Active Substance: DIPHENHYDRAMINE HYDROCHLORIDE
  3. GLIMEPIRIDE. [Concomitant]
     Active Substance: GLIMEPIRIDE
  4. HARVONI [Suspect]
     Active Substance: LEDIPASVIR\SOFOSBUVIR
     Indication: HEPATITIS C
     Route: 048
     Dates: start: 20150403, end: 20150529
  5. ALBUTEROL. [Concomitant]
     Active Substance: ALBUTEROL
  6. ATORVASTATIN [Concomitant]
     Active Substance: ATORVASTATIN
  7. ROBITUSSIN (GUAIFENESIN) [Concomitant]
     Active Substance: GUAIFENESIN
  8. FERMOTEROL W/BUDESONIDE [Concomitant]
  9. CALCIUM CARBONATE. [Concomitant]
     Active Substance: CALCIUM CARBONATE
  10. COENZYME [Concomitant]
     Active Substance: UBIDECARENONE
  11. LEVOTJYROXINE [Concomitant]
  12. METFORMIN [Concomitant]
     Active Substance: METFORMIN HYDROCHLORIDE
  13. POTASSIUM [Concomitant]
     Active Substance: POTASSIUM
  14. BUDESONIDE. [Concomitant]
     Active Substance: BUDESONIDE
  15. MULTIVITAMIN [Concomitant]
     Active Substance: VITAMINS
  16. ZINC ACETATE [Concomitant]
     Active Substance: ZINC ACETATE

REACTIONS (1)
  - Pneumonia [None]

NARRATIVE: CASE EVENT DATE: 20150509
